FAERS Safety Report 9331958 (Version 1)
Quarter: 2013Q2

REPORT INFORMATION
  Report Type: Spontaneous
  Country: US (occurrence: US)
  Receive Date: 20130605
  Receipt Date: 20130605
  Transmission Date: 20140414
  Serious: Yes (Other)
  Sender: FDA-Public Use
  Company Number: PHHY2013US055735

PATIENT
  Age: 73 Year
  Sex: Male

DRUGS (1)
  1. ACETYLSALICYLIC ACID [Suspect]
     Indication: PAIN
     Dosage: 2 DF
     Route: 048

REACTIONS (2)
  - Prostatic disorder [Recovering/Resolving]
  - Drug ineffective [Unknown]
